FAERS Safety Report 10044201 (Version 6)
Quarter: 2015Q1

REPORT INFORMATION
  Report Type: Report from Study
  Country: US (occurrence: US)
  Receive Date: 20140328
  Receipt Date: 20150331
  Transmission Date: 20150720
  Serious: Yes (Congenital Anomaly, Other)
  Sender: FDA-Public Use
  Company Number: US-ROCHE-1277849

PATIENT
  Age: 2 Day
  Sex: Male
  Weight: 2.72 kg

DRUGS (25)
  1. OMALIZUMAB [Suspect]
     Active Substance: OMALIZUMAB
     Indication: PRODUCT USED FOR UNKNOWN INDICATION
     Route: 064
     Dates: start: 20121105, end: 20130829
  2. OMALIZUMAB [Suspect]
     Active Substance: OMALIZUMAB
     Dosage: PARENT ROUTE OF ADMINISTRATION: SUBCUTANEOUS
     Route: 063
     Dates: start: 20131007
  3. OMALIZUMAB [Suspect]
     Active Substance: OMALIZUMAB
     Route: 063
     Dates: start: 20131230
  4. OMALIZUMAB [Suspect]
     Active Substance: OMALIZUMAB
     Dosage: PARENT ROUTE OF ADMINISTRATION: SUBCUTANEOUS
     Route: 063
     Dates: start: 20140522
  5. OMALIZUMAB [Suspect]
     Active Substance: OMALIZUMAB
     Route: 063
     Dates: start: 20140113
  6. OMALIZUMAB [Suspect]
     Active Substance: OMALIZUMAB
     Dosage: PARENT ROUTE OF ADMINISTRATION: SUBCUTANEOUS
     Route: 063
     Dates: start: 20140313
  7. OMALIZUMAB [Suspect]
     Active Substance: OMALIZUMAB
     Dosage: PARENT ROUTE OF ADMINISTRATION: SUBCUTANEOUS
     Route: 063
     Dates: start: 20140619
  8. OMALIZUMAB [Suspect]
     Active Substance: OMALIZUMAB
     Route: 063
     Dates: start: 20140717
  9. OMALIZUMAB [Suspect]
     Active Substance: OMALIZUMAB
     Route: 063
     Dates: start: 20140814
  10. OMALIZUMAB [Suspect]
     Active Substance: OMALIZUMAB
     Dosage: PARENT ROUTE OF ADMINISTRATION: SUBCUTANEOUS
     Route: 063
     Dates: start: 20140828
  11. OMALIZUMAB [Suspect]
     Active Substance: OMALIZUMAB
     Dosage: PARENT ROUTE OF ADMINISTRATION: SUBCUTANEOUS
     Route: 063
     Dates: start: 20130923
  12. OMALIZUMAB [Suspect]
     Active Substance: OMALIZUMAB
     Dosage: PARENT ROUTE OF ADMINISTRATION: SUBCUTANEOUS
     Route: 063
     Dates: start: 20140204
  13. OMALIZUMAB [Suspect]
     Active Substance: OMALIZUMAB
     Dosage: PARENT ROUTE OF ADMINISTRATION: SUBCUTANEOUS
     Route: 063
     Dates: start: 20131104
  14. OMALIZUMAB [Suspect]
     Active Substance: OMALIZUMAB
     Dosage: PARENT ROUTE OF ADMINISTRATION: SUBCUTANEOUS
     Route: 063
     Dates: start: 20131216
  15. OMALIZUMAB [Suspect]
     Active Substance: OMALIZUMAB
     Route: 063
     Dates: start: 20131021
  16. OMALIZUMAB [Suspect]
     Active Substance: OMALIZUMAB
     Dosage: PARENT ROUTE OF ADMINISTRATION: SUBCUTANEOUS
     Route: 063
     Dates: start: 20140410
  17. OMALIZUMAB [Suspect]
     Active Substance: OMALIZUMAB
     Route: 063
     Dates: start: 20140731
  18. OMALIZUMAB [Suspect]
     Active Substance: OMALIZUMAB
     Route: 063
     Dates: start: 20130909
  19. OMALIZUMAB [Suspect]
     Active Substance: OMALIZUMAB
     Dosage: PARENT ROUTE OF ADMINISTRATION: SUBCUTANEOUS
     Route: 063
     Dates: start: 20140605
  20. OMALIZUMAB [Suspect]
     Active Substance: OMALIZUMAB
     Route: 063
     Dates: start: 20140703
  21. OMALIZUMAB [Suspect]
     Active Substance: OMALIZUMAB
     Dosage: PARENT ROUTE OF ADMINISTRATION: SUBCUTANEOUS
     Route: 063
     Dates: start: 20131118
  22. OMALIZUMAB [Suspect]
     Active Substance: OMALIZUMAB
     Route: 063
     Dates: start: 20131202
  23. OMALIZUMAB [Suspect]
     Active Substance: OMALIZUMAB
     Route: 063
     Dates: start: 20140327
  24. OMALIZUMAB [Suspect]
     Active Substance: OMALIZUMAB
     Dosage: PARENT ROUTE OF ADMINISTRATION: SUBCUTANEOUS
     Route: 063
     Dates: start: 20140424
  25. OMALIZUMAB [Suspect]
     Active Substance: OMALIZUMAB
     Dosage: PARENT ROUTE OF ADMINISTRATION: SUBCUTANEOUS
     Route: 063
     Dates: start: 20140508

REACTIONS (12)
  - Nasopharyngitis [Unknown]
  - Gastroenteritis [Unknown]
  - Torticollis [Recovered/Resolved]
  - Candida infection [Unknown]
  - Conjunctivitis [Unknown]
  - Sinusitis [Unknown]
  - Foetal exposure during pregnancy [Unknown]
  - Failure to thrive [Recovered/Resolved]
  - Ear infection [Recovered/Resolved]
  - Upper respiratory tract infection [Unknown]
  - Movement disorder [Unknown]
  - Exposure during breast feeding [Unknown]

NARRATIVE: CASE EVENT DATE: 201309
